FAERS Safety Report 9713967 (Version 2)
Quarter: 2013Q4

REPORT INFORMATION
  Report Type: Spontaneous
  Country: US (occurrence: US)
  Receive Date: 20131126
  Receipt Date: 20131126
  Transmission Date: 20140711
  Serious: Yes (Hospitalization)
  Sender: FDA-Public Use
  Company Number: US-GILEAD-2008-0018162

PATIENT
  Age: 60 Year
  Sex: Female

DRUGS (10)
  1. LETAIRIS [Suspect]
     Indication: PULMONARY HYPERTENSION
     Route: 048
     Dates: start: 20080615, end: 20080916
  2. LASIX [Concomitant]
  3. NIFEDIPINE [Concomitant]
  4. PREDNISONE [Concomitant]
  5. CONJUGATED ESTROGEN [Concomitant]
  6. CELEXA [Concomitant]
  7. COLACE [Concomitant]
  8. ESOMEPRAZOLE [Concomitant]
  9. HYDROXYZINE [Concomitant]
     Dosage: QHS
  10. BACTRIM [Concomitant]

REACTIONS (2)
  - Oedema [Recovered/Resolved]
  - Dyspnoea [Recovered/Resolved]
